FAERS Safety Report 9075142 (Version 1)
Quarter: 2013Q1

REPORT INFORMATION
  Report Type: Spontaneous
  Country: US (occurrence: US)
  Receive Date: 20130129
  Receipt Date: 20130129
  Transmission Date: 20140127
  Serious: Yes (Hospitalization, Other)
  Sender: FDA-Public Use
  Company Number: US-009507513-1301USA012603

PATIENT
  Sex: Female

DRUGS (12)
  1. SINGULAIR [Suspect]
  2. DIVALPROEX SODIUM [Concomitant]
  3. CEFUROXIME [Concomitant]
  4. IBUPROFEN [Concomitant]
  5. LAMOTRIGINE [Concomitant]
  6. VALACYCLOVIR HYDROCHLORIDE [Concomitant]
  7. MECLIZINE [Concomitant]
  8. ALPRAZOLAM [Concomitant]
  9. ESCITALOPRAM [Concomitant]
  10. ACETAMINOPHEN [Concomitant]
  11. PSEUDOEPHEDRINE [Concomitant]
  12. DIPHENHYDRAMINE HYDROCHLORIDE [Concomitant]

REACTIONS (1)
  - Suicide attempt [Unknown]
